FAERS Safety Report 11370502 (Version 4)
Quarter: 2015Q3

REPORT INFORMATION
  Report Type: Spontaneous
  Country: IT (occurrence: IT)
  Receive Date: 20150812
  Receipt Date: 20150904
  Transmission Date: 20151125
  Serious: Yes (Death, Hospitalization)
  Sender: FDA-Public Use
  Company Number: IT-009507513-1508ITA004079

PATIENT
  Age: 74 Year
  Sex: Male

DRUGS (5)
  1. MK-0000 [Suspect]
     Active Substance: INVESTIGATIONAL PRODUCT
  2. RIBAVIRIN. [Suspect]
     Active Substance: RIBAVIRIN
     Indication: HEPATITIS C
     Dosage: UNK
  3. PROPRANOLOL HYDROCHLORIDE. [Concomitant]
     Active Substance: PROPRANOLOL HYDROCHLORIDE
     Dosage: UNK
     Route: 048
  4. HARVONI [Suspect]
     Active Substance: LEDIPASVIR\SOFOSBUVIR
     Indication: HEPATITIS C
     Dosage: 1 DOSE UNIT DAILY
     Route: 048
  5. METFORMIN [Concomitant]
     Active Substance: METFORMIN HYDROCHLORIDE
     Dosage: 3 DOSES (UNITS)
     Route: 048

REACTIONS (5)
  - Hallucination [Fatal]
  - Dyskinesia [Fatal]
  - Cerebral hygroma [Fatal]
  - Disorientation [Fatal]
  - Death [Fatal]

NARRATIVE: CASE EVENT DATE: 20150706
